FAERS Safety Report 6541914-6 (Version None)
Quarter: 2010Q1

REPORT INFORMATION
  Report Type: 
  Country: None (occurrence: None)
  Receive Date: 20100119
  Receipt Date: 20100108
  Transmission Date: 20100710
  Serious: Yes (Hospitalization)
  Sender: FDA-Public Use
  Company Number: JP-WYE-H12609309

PATIENT
  Age: 68 Year
  Sex: Male
  Weight: 59 kg

DRUGS (6)
  1. ANCARON [Suspect]
     Indication: VENTRICULAR TACHYCARDIA
     Dosage: 400 MG DAILY
     Route: 048
     Dates: start: 20061218, end: 20061231
  2. ANCARON [Suspect]
     Route: 048
     Dates: start: 20070101, end: 20070107
  3. ANCARON [Suspect]
     Route: 048
     Dates: start: 20070108, end: 20080701
  4. ASPIRIN [Concomitant]
     Dosage: DOSE AND FREQUENCY NOT SPECIFIED
     Route: 065
     Dates: start: 20060724
  5. WARFARIN [Concomitant]
     Dosage: DOSE AND FREQUENCY NOT SPECIFIED
     Route: 065
     Dates: start: 20060724
  6. RENIVACE [Concomitant]
     Dosage: DOSE AND FREQUENCY NOT SPECIFIED
     Route: 065
     Dates: start: 20060724

REACTIONS (1)
  - LUNG DISORDER [None]
